FAERS Safety Report 18421651 (Version 2)
Quarter: 2020Q4

REPORT INFORMATION
  Report Type: Spontaneous
  Country: US (occurrence: US)
  Receive Date: 20201023
  Receipt Date: 20201123
  Transmission Date: 20210114
  Serious: No
  Sender: FDA-Public Use
  Company Number: US-APOTEX-2020AP018950

PATIENT
  Sex: Female

DRUGS (2)
  1. AZELASTINE HCL NASAL SPRAY [Suspect]
     Active Substance: AZELASTINE HYDROCHLORIDE
     Indication: HYPERSENSITIVITY
     Dosage: UNK
     Route: 065
  2. ADVIL ALLERGY SINUS [Suspect]
     Active Substance: CHLORPHENIRAMINE MALEATE\IBUPROFEN\PSEUDOEPHEDRINE HYDROCHLORIDE
     Indication: HEADACHE
     Dosage: UNK
     Route: 065

REACTIONS (8)
  - Ocular discomfort [Recovered/Resolved]
  - Allergy test positive [Recovered/Resolved]
  - Product substitution issue [Unknown]
  - Drug ineffective [Recovered/Resolved]
  - Upper-airway cough syndrome [Recovered/Resolved]
  - Hypertension [Recovered/Resolved]
  - Nasal congestion [Recovered/Resolved]
  - Paranasal sinus discomfort [Recovered/Resolved]
